FAERS Safety Report 14714853 (Version 1)
Quarter: 2018Q2

REPORT INFORMATION
  Report Type: Spontaneous
  Country: FR (occurrence: FR)
  Receive Date: 20180404
  Receipt Date: 20180404
  Transmission Date: 20180711
  Serious: Yes (Hospitalization)
  Sender: FDA-Public Use
  Company Number: FR-TEVA-2018-FR-875853

PATIENT
  Age: 58 Year
  Sex: Female
  Weight: 66 kg

DRUGS (3)
  1. CEFTRIAXONE BASE [Suspect]
     Active Substance: CEFTRIAXONE
     Indication: SEPTIC SHOCK
     Route: 042
  2. AMOXICILLINE BASE [Suspect]
     Active Substance: AMOXICILLIN
     Indication: INFECTION
     Route: 065
  3. AMIKACINE [Concomitant]
     Active Substance: AMIKACIN
     Indication: SEPTIC SHOCK

REACTIONS (2)
  - Factor V deficiency [Recovered/Resolved]
  - Hepatitis [Recovered/Resolved]
